FAERS Safety Report 13503324 (Version 1)
Quarter: 2017Q2

REPORT INFORMATION
  Report Type: Spontaneous
  Country: GB (occurrence: GB)
  Receive Date: 20170502
  Receipt Date: 20170502
  Transmission Date: 20170830
  Serious: Yes (Other)
  Sender: FDA-Public Use
  Company Number: GB-PFIZER INC-2017185704

PATIENT
  Age: 65 Year
  Sex: Male

DRUGS (6)
  1. CEFUROXIME. [Suspect]
     Active Substance: CEFUROXIME
     Indication: SEPSIS
  2. VANCOMYCIN HCL [Suspect]
     Active Substance: VANCOMYCIN HYDROCHLORIDE
     Indication: COLITIS
  3. CEFUROXIME. [Suspect]
     Active Substance: CEFUROXIME
     Indication: POST PROCEDURAL DIARRHOEA
     Dosage: UNK
  4. VANCOMYCIN HCL [Suspect]
     Active Substance: VANCOMYCIN HYDROCHLORIDE
     Indication: POST PROCEDURAL DIARRHOEA
     Dosage: UNK
  5. VANCOMYCIN HCL [Suspect]
     Active Substance: VANCOMYCIN HYDROCHLORIDE
     Indication: SEPSIS
  6. CEFUROXIME. [Suspect]
     Active Substance: CEFUROXIME
     Indication: COLITIS

REACTIONS (1)
  - Clostridium bacteraemia [Recovered/Resolved]
